FAERS Safety Report 19034451 (Version 4)
Quarter: 2021Q2

REPORT INFORMATION
  Report Type: Spontaneous
  Country: US (occurrence: US)
  Receive Date: 20210319
  Receipt Date: 20210429
  Transmission Date: 20210717
  Serious: No
  Sender: FDA-Public Use
  Company Number: US-BEH-2021129593

PATIENT
  Age: 85 Year
  Sex: Male

DRUGS (6)
  1. HIZENTRA [Suspect]
     Active Substance: HUMAN IMMUNOGLOBULIN G
     Dosage: UNK
     Route: 065
  2. HIZENTRA [Suspect]
     Active Substance: HUMAN IMMUNOGLOBULIN G
     Dosage: UNK
     Route: 065
     Dates: start: 20210328, end: 20210328
  3. HIZENTRA [Suspect]
     Active Substance: HUMAN IMMUNOGLOBULIN G
     Indication: HYPER IGM SYNDROME
     Dosage: UNK, QOW
     Route: 058
  4. HIZENTRA [Suspect]
     Active Substance: HUMAN IMMUNOGLOBULIN G
     Dosage: UNK
     Route: 058
     Dates: start: 202103, end: 202103
  5. HIZENTRA [Suspect]
     Active Substance: HUMAN IMMUNOGLOBULIN G
     Dosage: UNK
     Route: 058
     Dates: start: 20210228, end: 20210228
  6. HIZENTRA [Suspect]
     Active Substance: HUMAN IMMUNOGLOBULIN G
     Dosage: UNK
     Route: 065

REACTIONS (12)
  - Infusion site rash [Recovered/Resolved]
  - Infusion site pruritus [Recovered/Resolved]
  - Infusion site warmth [Unknown]
  - Infusion site pruritus [Recovered/Resolved]
  - Hypersensitivity [Recovered/Resolved]
  - Infusion site erythema [Recovered/Resolved]
  - Recalled product administered [Unknown]
  - Infusion site erythema [Recovered/Resolved]
  - Infusion site rash [Recovered/Resolved]
  - Hypersensitivity [Recovered/Resolved]
  - Infusion site erythema [Unknown]
  - Infusion site reaction [Unknown]

NARRATIVE: CASE EVENT DATE: 20210228
